FAERS Safety Report 21533837 (Version 3)
Quarter: 2022Q4

REPORT INFORMATION
  Report Type: Spontaneous
  Country: FR (occurrence: FR)
  Receive Date: 20221101
  Receipt Date: 20221114
  Transmission Date: 20230113
  Serious: Yes (Other)
  Sender: FDA-Public Use
  Company Number: FR-ORGANON-O2210FRA002040

PATIENT
  Sex: Male

DRUGS (3)
  1. ADROVANCE [Suspect]
     Active Substance: ALENDRONATE SODIUM\CHOLECALCIFEROL
     Indication: Osteoporosis
     Dosage: 1 TABLET ON TUESDAY MORNING
     Route: 048
     Dates: start: 2012, end: 2017
  2. FIRMAGON [Suspect]
     Active Substance: DEGARELIX ACETATE
     Indication: Hormone therapy
     Dosage: 80 MG / 28 DAYS
     Dates: start: 202009
  3. DOLIPRANE [Concomitant]
     Active Substance: ACETAMINOPHEN
     Dosage: TAKE OCCASIONALLY DOLIPRANE WHEN NEEDED

REACTIONS (3)
  - Prostate cancer [Unknown]
  - Osteoporosis [Unknown]
  - Product use issue [Unknown]

NARRATIVE: CASE EVENT DATE: 20120101
